FAERS Safety Report 26108770 (Version 1)
Quarter: 2025Q4

REPORT INFORMATION
  Report Type: Spontaneous
  Country: EU (occurrence: EU)
  Receive Date: 20251201
  Receipt Date: 20251201
  Transmission Date: 20260118
  Serious: Yes (Other)
  Sender: MYLAN
  Company Number: EU-MYLANLABS-2025M1100018

PATIENT

DRUGS (28)
  1. PREDNISONE [Suspect]
     Active Substance: PREDNISONE
     Indication: Bone marrow failure
     Dosage: UNK
  2. PREDNISONE [Suspect]
     Active Substance: PREDNISONE
     Indication: Autoinflammatory disease
     Dosage: UNK
     Route: 065
  3. PREDNISONE [Suspect]
     Active Substance: PREDNISONE
     Indication: Rash neonatal
     Dosage: UNK
     Route: 065
  4. PREDNISONE [Suspect]
     Active Substance: PREDNISONE
     Indication: Haemophagocytic lymphohistiocytosis
     Dosage: UNK
  5. ANAKINRA [Suspect]
     Active Substance: ANAKINRA
     Indication: Bone marrow failure
     Dosage: UNK
  6. ANAKINRA [Suspect]
     Active Substance: ANAKINRA
     Indication: Autoinflammatory disease
     Dosage: UNK
     Route: 065
  7. ANAKINRA [Suspect]
     Active Substance: ANAKINRA
     Indication: Rash neonatal
     Dosage: UNK
     Route: 065
  8. ANAKINRA [Suspect]
     Active Substance: ANAKINRA
     Indication: Haemophagocytic lymphohistiocytosis
     Dosage: UNK
  9. BARICITINIB [Suspect]
     Active Substance: BARICITINIB
     Indication: Bone marrow failure
     Dosage: UNK
     Route: 065
  10. BARICITINIB [Suspect]
     Active Substance: BARICITINIB
     Indication: Autoinflammatory disease
     Dosage: UNK
  11. BARICITINIB [Suspect]
     Active Substance: BARICITINIB
     Indication: Rash neonatal
     Dosage: UNK
  12. BARICITINIB [Suspect]
     Active Substance: BARICITINIB
     Indication: Haemophagocytic lymphohistiocytosis
     Dosage: UNK
     Route: 065
  13. BARICITINIB [Suspect]
     Active Substance: BARICITINIB
     Dosage: UNK (RESTARTED)
     Route: 065
  14. BARICITINIB [Suspect]
     Active Substance: BARICITINIB
     Dosage: UNK (RESTARTED)
  15. BARICITINIB [Suspect]
     Active Substance: BARICITINIB
     Dosage: UNK (RESTARTED)
  16. BARICITINIB [Suspect]
     Active Substance: BARICITINIB
     Dosage: UNK (RESTARTED)
     Route: 065
  17. FILGRASTIM [Suspect]
     Active Substance: FILGRASTIM
     Indication: Bone marrow failure
     Dosage: UNK
  18. FILGRASTIM [Suspect]
     Active Substance: FILGRASTIM
     Indication: Autoinflammatory disease
     Dosage: UNK
     Route: 065
  19. FILGRASTIM [Suspect]
     Active Substance: FILGRASTIM
     Indication: Rash neonatal
     Dosage: UNK
     Route: 065
  20. FILGRASTIM [Suspect]
     Active Substance: FILGRASTIM
     Indication: Haemophagocytic lymphohistiocytosis
     Dosage: UNK
  21. ERYTHROPOIETIN [Suspect]
     Active Substance: ERYTHROPOIETIN
     Indication: Bone marrow failure
     Dosage: UNK
  22. ERYTHROPOIETIN [Suspect]
     Active Substance: ERYTHROPOIETIN
     Indication: Autoinflammatory disease
     Dosage: UNK
     Route: 065
  23. ERYTHROPOIETIN [Suspect]
     Active Substance: ERYTHROPOIETIN
     Indication: Rash neonatal
     Dosage: UNK
     Route: 065
  24. ERYTHROPOIETIN [Suspect]
     Active Substance: ERYTHROPOIETIN
     Indication: Haemophagocytic lymphohistiocytosis
     Dosage: UNK
  25. Immune globulin [Concomitant]
     Indication: Gestational alloimmune liver disease
     Dosage: UNK
  26. Immune globulin [Concomitant]
     Dosage: UNK
     Route: 042
  27. Immune globulin [Concomitant]
     Dosage: UNK
     Route: 042
  28. Immune globulin [Concomitant]
     Dosage: UNK

REACTIONS (1)
  - Drug ineffective [Unknown]
